FAERS Safety Report 18664635 (Version 2)
Quarter: 2021Q1

REPORT INFORMATION
  Report Type: Spontaneous
  Country: FR (occurrence: FR)
  Receive Date: 20201225
  Receipt Date: 20210218
  Transmission Date: 20210419
  Serious: Yes (Death, Life-Threatening)
  Sender: FDA-Public Use
  Company Number: FR-ACCORD-159935

PATIENT
  Sex: Male
  Weight: 18 kg

DRUGS (3)
  1. CYCLOPHOSPHAMIDE/CYCLOPHOSPHAMIDE MONOHYDRATE [Suspect]
     Active Substance: CYCLOPHOSPHAMIDE
     Indication: BONE MARROW TRANSPLANT
     Route: 041
     Dates: start: 2011
  2. BUSULFAN. [Suspect]
     Active Substance: BUSULFAN
     Indication: BONE MARROW TRANSPLANT
     Route: 041
     Dates: start: 2011
  3. FLUDARABINE/FLUDARABINE PHOSPHATE [Suspect]
     Active Substance: FLUDARABINE PHOSPHATE
     Indication: BONE MARROW TRANSPLANT
     Route: 041
     Dates: start: 2011

REACTIONS (5)
  - Respiratory failure [Not Recovered/Not Resolved]
  - Pleural thickening [Not Recovered/Not Resolved]
  - Lung transplant [Unknown]
  - Interstitial lung disease [Not Recovered/Not Resolved]
  - Pulmonary hypertension [Not Recovered/Not Resolved]

NARRATIVE: CASE EVENT DATE: 2017
